FAERS Safety Report 13411400 (Version 2)
Quarter: 2018Q1

REPORT INFORMATION
  Report Type: Spontaneous
  Country: US (occurrence: US)
  Receive Date: 20170406
  Receipt Date: 20180118
  Transmission Date: 20180508
  Serious: No
  Sender: FDA-Public Use
  Company Number: US-JNJFOC-20170304722

PATIENT
  Sex: Male

DRUGS (2)
  1. RISPERDAL [Suspect]
     Active Substance: RISPERIDONE
     Indication: SCHIZOPHRENIFORM DISORDER
     Dosage: AT VARIOUS DOSE OF 3 MG BEDTIME (HS), 4 MG HS  AND UNSPECIFIED DOSE
     Route: 048
     Dates: start: 20071228, end: 20080218
  2. RISPERDAL [Suspect]
     Active Substance: RISPERIDONE
     Indication: BIPOLAR DISORDER
     Dosage: AT VARIOUS DOSE OF 3 MG BEDTIME (HS), 4 MG HS  AND UNSPECIFIED DOSE
     Route: 048
     Dates: start: 20071228, end: 20080218

REACTIONS (2)
  - Gynaecomastia [Unknown]
  - Emotional disorder [Unknown]
